FAERS Safety Report 10282046 (Version 1)
Quarter: 2014Q3

REPORT INFORMATION
  Report Type: Spontaneous
  Country: CA (occurrence: CA)
  Receive Date: 20140707
  Receipt Date: 20140707
  Transmission Date: 20150326
  Serious: Yes (Hospitalization)
  Sender: FDA-Public Use
  Company Number: CA-GLAXOSMITHKLINE-A1079898A

PATIENT
  Sex: Female

DRUGS (2)
  1. REQUIP [Suspect]
     Active Substance: ROPINIROLE HYDROCHLORIDE
     Indication: RESTLESS LEGS SYNDROME
     Dosage: .25MG VARIABLE DOSE
     Route: 048
     Dates: start: 20080204, end: 20090121
  2. MIRAPEX [Suspect]
     Active Substance: PRAMIPEXOLE DIHYDROCHLORIDE
     Indication: RESTLESS LEGS SYNDROME
     Dates: start: 200201, end: 2009

REACTIONS (6)
  - Hypersexuality [Unknown]
  - Lethargy [Unknown]
  - Pathological gambling [Unknown]
  - Hyperphagia [Unknown]
  - Suicidal ideation [Unknown]
  - Polydipsia [Unknown]
